FAERS Safety Report 5174014-0 (Version None)
Quarter: 2006Q4

REPORT INFORMATION
  Report Type: 
  Country: None (occurrence: None)
  Receive Date: 20061214
  Receipt Date: 20060923
  Transmission Date: 20070319
  Serious: No
  Sender: FDA-Public Use
  Company Number: US-AMGEN-US194602

PATIENT
  Sex: Male

DRUGS (2)
  1. ENBREL [Suspect]
     Indication: RHEUMATOID ARTHRITIS
     Dates: start: 20060901
  2. METHOTREXATE [Concomitant]
     Route: 048
     Dates: start: 20050201

REACTIONS (2)
  - COUGH [None]
  - SINUS CONGESTION [None]
